FAERS Safety Report 16256302 (Version 3)
Quarter: 2019Q2

REPORT INFORMATION
  Report Type: Spontaneous
  Country: FR (occurrence: FR)
  Receive Date: 20190430
  Receipt Date: 20190607
  Transmission Date: 20190711
  Serious: Yes (Hospitalization)
  Sender: FDA-Public Use
  Company Number: FR-MYLANLABS-2019M1040277

PATIENT
  Age: 52 Year
  Sex: Male

DRUGS (16)
  1. GEMCITABINE [Suspect]
     Active Substance: GEMCITABINE\GEMCITABINE HYDROCHLORIDE
     Indication: BRONCHIAL NEOPLASM
     Dosage: 2150 MILLIGRAM, CYCLE
     Route: 042
     Dates: start: 20120611
  2. MECIR [Concomitant]
     Active Substance: TAMSULOSIN HYDROCHLORIDE
     Dosage: 0.4 MILLIGRAM, QD
  3. LAMALINE                           /00764901/ [Concomitant]
     Active Substance: ACETAMINOPHEN\BELLADONNA LEAF\CAFFEINE\OPIUM
     Dosage: 1 DOSAGE FORM, TID
  4. GEMCITABINE MYLAN 40 MG/ML, SOLUTION ? DILUER POUR PERFUSION [Suspect]
     Active Substance: GEMCITABINE\GEMCITABINE HYDROCHLORIDE
     Dosage: 2150 MG,QCY
     Route: 042
     Dates: start: 20120611, end: 20120611
  5. BISOPROLOL [Concomitant]
     Active Substance: BISOPROLOL
     Dosage: 5 MILLIGRAM, QD
  6. TAMSULOSIN [Suspect]
     Active Substance: TAMSULOSIN
     Dosage: .4 MG,QD
  7. GEMCITABINE MYLAN 40 MG/ML, SOLUTION ? DILUER POUR PERFUSION [Suspect]
     Active Substance: GEMCITABINE\GEMCITABINE HYDROCHLORIDE
     Indication: BRONCHIAL NEOPLASM
     Dosage: 2100 MILLIGRAM, CYCLE
     Route: 042
     Dates: start: 20120604, end: 20120604
  8. DIAZEPAM. [Concomitant]
     Active Substance: DIAZEPAM
     Dosage: 5 MILLIGRAM, QD
  9. CARBOPLATIN HOSPIRA [Suspect]
     Active Substance: CARBOPLATIN
     Dosage: 470 MG,QCY
     Route: 042
     Dates: start: 20120604, end: 20120604
  10. FOLIC ACID. [Concomitant]
     Active Substance: FOLIC ACID
     Dosage: 0.4 MILLIGRAM, QD
  11. PANTOPRAZOLE [Concomitant]
     Active Substance: PANTOPRAZOLE
     Dosage: 20 MILLIGRAM, QD
  12. GEMCITABINE MYLAN 40 MG/ML, SOLUTION ? DILUER POUR PERFUSION [Suspect]
     Active Substance: GEMCITABINE\GEMCITABINE HYDROCHLORIDE
     Dosage: 2150 MILLIGRAM, CYCLE
     Route: 042
     Dates: start: 20120611
  13. CALCIPARINE [Suspect]
     Active Substance: HEPARIN CALCIUM
     Indication: PRODUCT USED FOR UNKNOWN INDICATION
     Dosage: UNK
     Route: 058
     Dates: start: 20120612, end: 20120618
  14. CARBOPLATIN HOSPIRA [Suspect]
     Active Substance: CARBOPLATIN
     Indication: BRONCHIAL NEOPLASM
     Dosage: 470 MILLIGRAM, CYCLE
     Route: 042
     Dates: start: 20120604
  15. AOTAL [Concomitant]
     Active Substance: ACAMPROSATE CALCIUM
     Dosage: 2 DF,TID
  16. EFFEXOR [Concomitant]
     Active Substance: VENLAFAXINE HYDROCHLORIDE
     Dosage: 75 MILLIGRAM, QD

REACTIONS (1)
  - Bone marrow failure [Recovering/Resolving]

NARRATIVE: CASE EVENT DATE: 20120616
